FAERS Safety Report 7009420-2 (Version None)
Quarter: 2010Q3

REPORT INFORMATION
  Report Type: 
  Country: None (occurrence: None)
  Receive Date: 20100923
  Receipt Date: 20100916
  Transmission Date: 20110219
  Serious: Yes (Other)
  Sender: FDA-Public Use
  Company Number: US-BAYER-201020131BCC

PATIENT
  Age: 7 Year
  Sex: Male
  Weight: 23 kg

DRUGS (13)
  1. ASPIRIN [Suspect]
     Indication: PRODUCT USED FOR UNKNOWN INDICATION
     Dosage: TOTAL DAILY DOSE: 81 MG  UNIT DOSE: 81 MG
     Route: 048
  2. PLAVIX [Suspect]
     Indication: CORONARY ARTERIAL STENT INSERTION
     Route: 048
     Dates: end: 20091015
  3. PLAVIX [Suspect]
     Route: 048
     Dates: start: 20091001
  4. PLAVIX [Suspect]
     Route: 048
     Dates: start: 20080630
  5. PLAVIX [Suspect]
     Route: 048
     Dates: start: 20091016
  6. FISH OIL [Suspect]
     Indication: PRODUCT USED FOR UNKNOWN INDICATION
     Route: 065
     Dates: end: 20090101
  7. LASIX [Concomitant]
     Route: 065
  8. ALDACTONE [Concomitant]
     Route: 065
  9. SYNTHROID [Concomitant]
     Route: 065
  10. MULTI-VITAMINS [Concomitant]
     Route: 065
  11. OXYGEN [Concomitant]
     Dosage: VIA NASAL CANNULA
     Route: 045
  12. MIRALAX [Concomitant]
     Route: 065
  13. FLONASE [Concomitant]
     Route: 065

REACTIONS (3)
  - CONTUSION [None]
  - HAEMATEMESIS [None]
  - MOUTH HAEMORRHAGE [None]
